FAERS Safety Report 5400950-3 (Version None)
Quarter: 2007Q3

REPORT INFORMATION
  Report Type: 
  Country: None (occurrence: None)
  Receive Date: 20070730
  Receipt Date: 20070719
  Transmission Date: 20080115
  Serious: Yes (Other)
  Sender: FDA-Public Use
  Company Number: US-BOEHRINGER INGELHEIM PHARMACEUTICALS, INC.-2007-BP-17758BP

PATIENT
  Sex: Male

DRUGS (8)
  1. FLOMAX [Suspect]
     Indication: BENIGN PROSTATIC HYPERPLASIA
     Dates: start: 20020101, end: 20070501
  2. FLOMAX [Suspect]
     Dates: start: 20070712, end: 20070713
  3. GLUCEMA [Concomitant]
  4. NEURONTIN [Concomitant]
  5. PROZAC [Concomitant]
  6. MORPHINE SULFATE [Concomitant]
  7. AMBIEN [Concomitant]
  8. CHEMOTHERAPY [Concomitant]
     Dates: start: 20070401

REACTIONS (2)
  - DEVICE OCCLUSION [None]
  - PHARYNGEAL CANCER STAGE UNSPECIFIED [None]
